FAERS Safety Report 25725900 (Version 1)
Quarter: 2025Q3

REPORT INFORMATION
  Report Type: Spontaneous
  Country: EU (occurrence: EU)
  Receive Date: 20250826
  Receipt Date: 20250826
  Transmission Date: 20251021
  Serious: Yes (Other)
  Sender: RANBAXY
  Company Number: EU-SUN PHARMACEUTICAL INDUSTRIES INC-2025RR-524282

PATIENT
  Age: 31 Year
  Sex: Female
  Weight: 55 kg

DRUGS (2)
  1. PREGABALIN [Suspect]
     Active Substance: PREGABALIN
     Indication: Generalised anxiety disorder
     Dosage: 1 DOSAGE FORM, QD, USED FOR 4 WEEKS IN THE EVENING
     Route: 048
  2. PREFAXINE [Concomitant]
     Indication: Generalised anxiety disorder
     Dosage: 1 DOSAGE FORM, QD, ONHOING THERAPY, DRUG TAKEN IN THE MORNING
     Route: 048
     Dates: start: 20210819

REACTIONS (6)
  - Feeling jittery [Not Recovered/Not Resolved]
  - Palpitations [Not Recovered/Not Resolved]
  - Seizure [Not Recovered/Not Resolved]
  - Dry mouth [Not Recovered/Not Resolved]
  - Weight decreased [Not Recovered/Not Resolved]
  - Food aversion [Not Recovered/Not Resolved]
